FAERS Safety Report 17154442 (Version 1)
Quarter: 2019Q4

REPORT INFORMATION
  Report Type: Spontaneous
  Country: CN (occurrence: CN)
  Receive Date: 20191213
  Receipt Date: 20191213
  Transmission Date: 20200122
  Serious: Yes (Hospitalization, Other)
  Sender: FDA-Public Use
  Company Number: CN-BAXTER-2019BAX025159

PATIENT
  Age: 18 Year
  Sex: Female
  Weight: 45 kg

DRUGS (4)
  1. 5% GLUCOSE  INJECTION [Suspect]
     Active Substance: DEXTROSE
     Dosage: DOXORUBICIN HYDROCHLORIDE LIPOSOME INJECTION 80 MG + COMBINED DRUGS 5% GLUCOSE INJECTION 250ML
     Route: 041
     Dates: start: 20191101, end: 20191101
  2. 5% GLUCOSE  INJECTION [Suspect]
     Active Substance: DEXTROSE
     Indication: MEDICATION DILUTION
     Dosage: IFOSFAMIDE FOR INJECTION 5G + COMBINED DRUGS 5% GLUCOSE INJECTION 500ML
     Route: 041
     Dates: start: 20191101, end: 20191101
  3. KAI LAI [DOXORUBICIN HYDROCHLORIDE] [Suspect]
     Active Substance: DOXORUBICIN HYDROCHLORIDE
     Indication: SYNOVIAL SARCOMA
     Dosage: DOXORUBICIN HYDROCHLORIDE LIPOSOME INJECTION 80 MG + COMBINED DRUGS 5% GLUCOSE INJECTION 250ML
     Route: 041
     Dates: start: 20191101, end: 20191101
  4. HOLOXAN [Suspect]
     Active Substance: IFOSFAMIDE
     Indication: SYNOVIAL SARCOMA
     Dosage: IFOSFAMIDE FOR INJECTION 5G + COMBINED DRUGS 5% GLUCOSE INJECTION 500ML
     Route: 041
     Dates: start: 20191101, end: 20191101

REACTIONS (13)
  - Mouth ulceration [Recovering/Resolving]
  - Erythema [Recovering/Resolving]
  - Nausea [Recovering/Resolving]
  - Oral pain [Unknown]
  - Vomiting [Recovered/Resolved]
  - Diarrhoea [Recovering/Resolving]
  - Cough [Not Recovered/Not Resolved]
  - Pyrexia [Not Recovered/Not Resolved]
  - Pancytopenia [Recovering/Resolving]
  - Sputum purulent [Not Recovered/Not Resolved]
  - Swelling face [Recovering/Resolving]
  - Palmar-plantar erythrodysaesthesia syndrome [Recovering/Resolving]
  - Rhinorrhoea [Recovered/Resolved]

NARRATIVE: CASE EVENT DATE: 20191110
